FAERS Safety Report 15863258 (Version 1)
Quarter: 2018Q4

REPORT INFORMATION
  Report Type: Spontaneous
  Country: US (occurrence: US)
  Receive Date: 20181231
  Receipt Date: 20181231
  Transmission Date: 20190205
  Serious: Yes (Life-Threatening)
  Sender: FDA-Public Use
  Company Number: None

PATIENT
  Age: 17 Year
  Sex: Male
  Weight: 67.4 kg

DRUGS (1)
  1. MIRCERA [Suspect]
     Active Substance: METHOXY POLYETHYLENE GLYCOL-EPOETIN BETA
     Indication: ANAEMIA
     Route: 040
     Dates: start: 20171202, end: 20180112

REACTIONS (3)
  - Erythema [None]
  - Dyspnoea [None]
  - Flushing [None]

NARRATIVE: CASE EVENT DATE: 20180112
